FAERS Safety Report 20108118 (Version 1)
Quarter: 2021Q4

REPORT INFORMATION
  Report Type: Spontaneous
  Country: US (occurrence: US)
  Receive Date: 20211124
  Receipt Date: 20211124
  Transmission Date: 20220303
  Serious: No
  Sender: FDA-Public Use
  Company Number: US-PFIZER INC-2021480887

PATIENT
  Age: 60 Year
  Sex: Female
  Weight: 108.86 kg

DRUGS (1)
  1. MEDROL [Suspect]
     Active Substance: METHYLPREDNISOLONE
     Indication: Asthma
     Dosage: 4 MG (4MG DOSE PACK, AMOUNT 21 TABLETS)
     Dates: start: 20210407

REACTIONS (4)
  - Therapeutic product effect incomplete [Unknown]
  - Poor quality product administered [Unknown]
  - Product physical issue [Unknown]
  - Incorrect dose administered [Unknown]

NARRATIVE: CASE EVENT DATE: 20210407
